FAERS Safety Report 22171249 (Version 1)
Quarter: 2023Q2

REPORT INFORMATION
  Report Type: Report from Study
  Country: US (occurrence: US)
  Receive Date: 20230404
  Receipt Date: 20230404
  Transmission Date: 20230721
  Serious: Yes (Other)
  Sender: FDA-Public Use
  Company Number: US-BAYER-2023P005928

PATIENT
  Age: 38 Year
  Sex: Female

DRUGS (4)
  1. ADEMPAS [Suspect]
     Active Substance: RIOCIGUAT
     Indication: Pulmonary arterial hypertension
     Dosage: UNK
     Route: 048
  2. ADEMPAS [Suspect]
     Active Substance: RIOCIGUAT
     Indication: Pulmonary arterial hypertension
     Dosage: 2 MG, TID
     Route: 048
     Dates: start: 20230121
  3. ADEMPAS [Suspect]
     Active Substance: RIOCIGUAT
     Indication: Pulmonary arterial hypertension
     Dosage: 1.5 MG, TID
     Route: 048
     Dates: start: 202301
  4. UPTRAVI [Suspect]
     Active Substance: SELEXIPAG

REACTIONS (7)
  - Hypotension [None]
  - Unresponsive to stimuli [None]
  - Hypotension [None]
  - Dizziness postural [None]
  - Dizziness [None]
  - Headache [None]
  - Dyspepsia [None]

NARRATIVE: CASE EVENT DATE: 20230101
